FAERS Safety Report 14044352 (Version 1)
Quarter: 2017Q4

REPORT INFORMATION
  Report Type: Spontaneous
  Country: US (occurrence: US)
  Receive Date: 20171004
  Receipt Date: 20171004
  Transmission Date: 20180321
  Serious: Yes (Other)
  Sender: FDA-Public Use
  Company Number: None

PATIENT
  Age: 45 Year
  Sex: Male
  Weight: 135.45 kg

DRUGS (1)
  1. KRYSTEXXA [Suspect]
     Active Substance: PEGLOTICASE
     Indication: GOUT
     Dosage: ?          OTHER FREQUENCY:Q 2 WEEKS;?
     Route: 042

REACTIONS (6)
  - Throat irritation [None]
  - Hyperhidrosis [None]
  - Palpitations [None]
  - Flushing [None]
  - Pruritus [None]
  - Back pain [None]

NARRATIVE: CASE EVENT DATE: 20170927
